FAERS Safety Report 16253440 (Version 2)
Quarter: 2019Q2

REPORT INFORMATION
  Report Type: Report from Study
  Country: None (occurrence: GB)
  Receive Date: 20190430
  Receipt Date: 20190507
  Transmission Date: 20190711
  Serious: Yes (Hospitalization)
  Sender: FDA-Public Use
  Company Number: GB-ABBVIE-19K-167-2757509-00

PATIENT
  Age: 77 Year
  Sex: Female

DRUGS (2)
  1. HYRIMOZ [Suspect]
     Active Substance: ADALIMUMAB-ADAZ
     Indication: RHEUMATOID ARTHRITIS
     Dosage: 40 MG, FORTNIGHTLY
     Route: 058
     Dates: start: 20190114, end: 20190319
  2. HUMIRA [Suspect]
     Active Substance: ADALIMUMAB
     Indication: PRODUCT USED FOR UNKNOWN INDICATION
     Route: 058

REACTIONS (9)
  - Nonspecific reaction [Unknown]
  - Eye pain [Unknown]
  - Nausea [Unknown]
  - Blood sodium decreased [Unknown]
  - Paraesthesia [Unknown]
  - Hypertension [Recovering/Resolving]
  - Balance disorder [Unknown]
  - Malaise [Recovering/Resolving]
  - Eye swelling [Unknown]

NARRATIVE: CASE EVENT DATE: 20190225
